FAERS Safety Report 7650699-1 (Version None)
Quarter: 2011Q3

REPORT INFORMATION
  Report Type: 
  Country: None (occurrence: None)
  Receive Date: 20110802
  Receipt Date: 20110725
  Transmission Date: 20111222
  Serious: Yes (Hospitalization)
  Sender: FDA-Public Use
  Company Number: CA-JNJFOC-20110711037

PATIENT
  Age: 67 Year
  Sex: Female
  Weight: 114 kg

DRUGS (22)
  1. AMLODIPINE [Concomitant]
  2. HYDROCHLOROTHIAZIDE [Concomitant]
  3. LANSOPRAZOLE [Concomitant]
  4. LEVOTHYROXINE SODIUM [Concomitant]
  5. CEFAZOLIN [Concomitant]
  6. CLONAZEPAM [Concomitant]
  7. FLUTICASONE [Concomitant]
  8. NALOXONE [Concomitant]
  9. BUPIVACAINE HCL [Concomitant]
  10. ASPIRIN [Concomitant]
  11. OLMESARTAN MEDOXOMIL [Concomitant]
  12. CLOBAZAM [Concomitant]
  13. OXYCODONE HCL [Concomitant]
  14. BETAHISTINE [Concomitant]
  15. ALBUTEROL [Concomitant]
  16. FUROSEMIDE [Concomitant]
  17. ACEBUTOLOL [Concomitant]
  18. HYDROMORPHONE HCL [Concomitant]
  19. HYDROMORPHONE HCL [Concomitant]
  20. XARELTO [Suspect]
     Indication: ILL-DEFINED DISORDER
     Route: 048
  21. ACETAMINOPHEN [Concomitant]
  22. SERTRALINE HYDROCHLORIDE [Concomitant]

REACTIONS (6)
  - GRAND MAL CONVULSION [None]
  - SEDATION [None]
  - HAEMOGLOBIN DECREASED [None]
  - HYPONATRAEMIA [None]
  - ELECTROCARDIOGRAM ABNORMAL [None]
  - TROPONIN INCREASED [None]
